FAERS Safety Report 6664250-6 (Version None)
Quarter: 2010Q2

REPORT INFORMATION
  Report Type: 
  Country: None (occurrence: None)
  Receive Date: 20100401
  Receipt Date: 20100322
  Transmission Date: 20101027
  Serious: Yes (Other)
  Sender: FDA-Public Use
  Company Number: PHHY2010IT19062

PATIENT
  Age: 9 Year
  Sex: Male

DRUGS (1)
  1. CYCLOSPORINE [Suspect]
     Indication: ALPORT'S SYNDROME

REACTIONS (2)
  - NEPHROPATHY TOXIC [None]
  - TUBULOINTERSTITIAL NEPHRITIS [None]
